FAERS Safety Report 17372659 (Version 1)
Quarter: 2020Q1

REPORT INFORMATION
  Report Type: Spontaneous
  Country: US (occurrence: US)
  Receive Date: 20200205
  Receipt Date: 20200205
  Transmission Date: 20200409
  Serious: No
  Sender: FDA-Public Use
  Company Number: US-FRESENIUS KABI-FK202001176

PATIENT

DRUGS (1)
  1. VANCOMYCIN (MANUFACTURER UNKNOWN) [Suspect]
     Active Substance: VANCOMYCIN
     Indication: CLOSTRIDIUM DIFFICILE INFECTION
     Route: 065

REACTIONS (2)
  - Malaise [Unknown]
  - Clostridium difficile infection [Unknown]
